FAERS Safety Report 8356123-8 (Version None)
Quarter: 2012Q2

REPORT INFORMATION
  Report Type: 
  Country: None (occurrence: None)
  Receive Date: 20120514
  Receipt Date: 20120501
  Transmission Date: 20120825
  Serious: Yes (Other)
  Sender: FDA-Public Use
  Company Number: DE-CELGENEUS-062-21880-12050278

PATIENT

DRUGS (1)
  1. REVLIMID [Suspect]
     Indication: MULTIPLE MYELOMA
     Route: 048

REACTIONS (12)
  - MULTIPLE MYELOMA [None]
  - INFECTION [None]
  - TOXICITY TO VARIOUS AGENTS [None]
  - FATIGUE [None]
  - UNEVALUABLE EVENT [None]
  - NEUROPATHY PERIPHERAL [None]
  - NEOPLASM PROGRESSION [None]
  - ACUTE GRAFT VERSUS HOST DISEASE [None]
  - THROMBOCYTOPENIA [None]
  - NEUTROPENIA [None]
  - INFECTION REACTIVATION [None]
  - DISEASE RECURRENCE [None]
